APPROVED DRUG PRODUCT: ZOLPIDEM TARTRATE
Active Ingredient: ZOLPIDEM TARTRATE
Strength: 12.5MG
Dosage Form/Route: TABLET, EXTENDED RELEASE;ORAL
Application: A213592 | Product #002 | TE Code: AB
Applicant: BRECKENRIDGE PHARMACEUTICAL INC
Approved: Jun 4, 2020 | RLD: No | RS: No | Type: RX